FAERS Safety Report 8069686-7 (Version None)
Quarter: 2012Q1

REPORT INFORMATION
  Report Type: 
  Country: None (occurrence: None)
  Receive Date: 20120125
  Receipt Date: 20120123
  Transmission Date: 20120608
  Serious: Yes (Hospitalization)
  Sender: FDA-Public Use
  Company Number: FR-SANOFI-AVENTIS-2011SA083234

PATIENT
  Age: 14 Year
  Sex: Female

DRUGS (18)
  1. CANCIDAS [Interacting]
     Indication: ASPERGILLOSIS
     Route: 042
     Dates: start: 20110913, end: 20110922
  2. RETINOL [Concomitant]
  3. VFEND [Interacting]
     Indication: BRONCHOPULMONARY ASPERGILLOSIS
     Route: 048
     Dates: start: 20110912, end: 20110928
  4. AZITHROMYCIN [Interacting]
     Route: 048
     Dates: end: 20110911
  5. RIFADIN [Suspect]
     Indication: PULMONARY TUBERCULOSIS
     Route: 048
     Dates: start: 20110608, end: 20111009
  6. VFEND [Interacting]
     Route: 065
     Dates: start: 20111101
  7. TACROLIMUS [Interacting]
     Dates: end: 20110911
  8. TACROLIMUS [Interacting]
     Route: 048
     Dates: start: 20111006
  9. AZITHROMYCIN [Interacting]
     Indication: OPPORTUNISTIC INFECTION PROPHYLAXIS
     Route: 048
     Dates: start: 20110912
  10. ETHAMBUTOL HYDROCHLORIDE [Concomitant]
     Indication: TUBERCULOSIS
     Dates: start: 20110608
  11. INSULIN [Concomitant]
  12. MYCOPHENOLATE MOFETIL (CELLCEPT) [Concomitant]
     Dates: start: 20111010
  13. RIMIFON [Concomitant]
     Indication: TUBERCULOSIS
     Dates: start: 20110608
  14. TACROLIMUS [Interacting]
     Indication: LUNG TRANSPLANT
     Route: 048
     Dates: start: 20110916, end: 20110921
  15. TACROLIMUS [Interacting]
     Route: 048
     Dates: start: 20110921, end: 20111006
  16. MYCOPHENOLATE MOFETIL (CELLCEPT) [Concomitant]
     Indication: LUNG TRANSPLANT
     Dates: start: 20051020, end: 20111010
  17. PYRAZINAMIDE [Concomitant]
     Indication: TUBERCULOSIS
     Dates: start: 20110608
  18. CREON [Concomitant]

REACTIONS (3)
  - RENAL FAILURE ACUTE [None]
  - DRUG LEVEL INCREASED [None]
  - DRUG INTERACTION [None]
